FAERS Safety Report 19173346 (Version 1)
Quarter: 2021Q2

REPORT INFORMATION
  Report Type: Spontaneous
  Country: SE (occurrence: SE)
  Receive Date: 20210423
  Receipt Date: 20210423
  Transmission Date: 20210717
  Serious: Yes (Other)
  Sender: FDA-Public Use
  Company Number: SE-TEVA-2021-SE-1903253

PATIENT
  Sex: Female

DRUGS (1)
  1. TAMOXIFEN NORDIC DRUGS [Suspect]
     Active Substance: TAMOXIFEN
     Route: 048

REACTIONS (3)
  - Balance disorder [Unknown]
  - Status epilepticus [Unknown]
  - Cerebral venous thrombosis [Unknown]
